FAERS Safety Report 13666224 (Version 1)
Quarter: 2017Q2

REPORT INFORMATION
  Report Type: Spontaneous
  Country: US (occurrence: US)
  Receive Date: 20170619
  Receipt Date: 20170619
  Transmission Date: 20170830
  Serious: No
  Sender: FDA-Public Use
  Company Number: US-ROCHE-1019372

PATIENT
  Sex: Female
  Weight: 56.3 kg

DRUGS (1)
  1. XELODA [Suspect]
     Active Substance: CAPECITABINE
     Indication: BREAST CANCER METASTATIC
     Route: 065

REACTIONS (6)
  - Headache [Unknown]
  - Stomatitis [Unknown]
  - Cheilitis [Unknown]
  - Fatigue [Unknown]
  - Abdominal pain upper [Unknown]
  - Pain [Unknown]
